FAERS Safety Report 11213691 (Version 1)
Quarter: 2015Q2

REPORT INFORMATION
  Report Type: Spontaneous
  Country: US (occurrence: US)
  Receive Date: 20150623
  Receipt Date: 20150623
  Transmission Date: 20150821
  Serious: No
  Sender: FDA-Public Use
  Company Number: US-MYLANLABS-2014M1006696

PATIENT
  Sex: Male

DRUGS (1)
  1. PRAZOSIN HYDROCHLORIDE CAPSULES USP [Suspect]
     Active Substance: PRAZOSIN HYDROCHLORIDE
     Dosage: 2 MG, QD
     Route: 048

REACTIONS (3)
  - Drug ineffective [Recovered/Resolved]
  - Medication residue present [Recovered/Resolved]
  - Wrong technique in drug usage process [Not Recovered/Not Resolved]
